FAERS Safety Report 24547006 (Version 1)
Quarter: 2024Q4

REPORT INFORMATION
  Report Type: Spontaneous
  Country: US (occurrence: US)
  Receive Date: 20241025
  Receipt Date: 20241025
  Transmission Date: 20250114
  Serious: No
  Sender: AILEX PHARMACEUTICALS LLC
  Company Number: AP-2024-US-6093

PATIENT
  Age: 47 Year
  Sex: Male

DRUGS (1)
  1. CROMOLYN SODIUM [Suspect]
     Active Substance: CROMOLYN SODIUM
     Indication: Mastocytosis
     Route: 048
     Dates: start: 20240815

REACTIONS (1)
  - Product dose omission issue [Unknown]
